FAERS Safety Report 10105296 (Version 2)
Quarter: 2014Q2

REPORT INFORMATION
  Report Type: Other
  Country: None (occurrence: US)
  Receive Date: 20140424
  Receipt Date: 20140625
  Transmission Date: 20141212
  Serious: Yes (Hospitalization, Other)
  Sender: FDA-Public Use
  Company Number: US-GSKPPD-2014GSK002672

PATIENT
  Age: 43 Year
  Sex: Male

DRUGS (4)
  1. AVANDIA [Suspect]
     Indication: DIABETES MELLITUS
     Route: 048
     Dates: start: 200310, end: 200409
  2. PLAVIX [Concomitant]
  3. LASIX [Concomitant]
  4. NORVASC [Concomitant]

REACTIONS (1)
  - Myocardial infarction [Recovered/Resolved]
